FAERS Safety Report 4687649-6 (Version None)
Quarter: 2005Q2

REPORT INFORMATION
  Report Type: 
  Country: None (occurrence: None)
  Receive Date: 20050608
  Receipt Date: 20050608
  Transmission Date: 20051028
  Serious: Yes (Other)
  Sender: FDA-Public Use
  Company Number: None

PATIENT
  Age: 75 Year
  Sex: Male
  Weight: 103.4201 kg

DRUGS (15)
  1. VYTORIN [Suspect]
     Indication: HYPERLIPIDAEMIA
     Dosage: 10MG/40MG   Q DAY   ORAL
     Route: 048
     Dates: start: 20050127, end: 20050316
  2. ALBUTEROL [Concomitant]
  3. CLONAZEPAM [Concomitant]
  4. FERROUS SO4 [Concomitant]
  5. FLUNISOLIDE [Concomitant]
  6. FUROSEMIDE [Concomitant]
  7. HYDRALAZINE HCL [Concomitant]
  8. HYDROXYZINE HCL [Concomitant]
  9. ISOSORBIDE MONONITRATE [Concomitant]
  10. LISINOPRIL [Concomitant]
  11. MUPIROCIN CALCIUM [Concomitant]
  12. OMEPRAZOLE [Concomitant]
  13. SALMETEROL [Concomitant]
  14. VITAMIN E [Concomitant]
  15. ZINC SULFATE [Concomitant]

REACTIONS (1)
  - DIARRHOEA [None]
